FAERS Safety Report 20607361 (Version 2)
Quarter: 2022Q1

REPORT INFORMATION
  Report Type: Spontaneous
  Country: US (occurrence: US)
  Receive Date: 20220317
  Receipt Date: 20220331
  Transmission Date: 20220424
  Serious: Yes (Hospitalization)
  Sender: FDA-Public Use
  Company Number: US-TEVA-2022-US-2016771

PATIENT
  Age: 5 Month
  Sex: Female

DRUGS (4)
  1. FLUDROCORTISONE [Suspect]
     Active Substance: FLUDROCORTISONE
     Indication: Adrenogenital syndrome
     Dosage: .25 MILLIGRAM DAILY; HIGH-DOSE
     Route: 065
  2. HYDROCORTISONE [Suspect]
     Active Substance: HYDROCORTISONE
     Indication: Adrenogenital syndrome
     Dosage: STRESS DOSING
     Route: 042
  3. HYDROCORTISONE [Suspect]
     Active Substance: HYDROCORTISONE
     Dosage: 13 MG/M2 DAILY; MAINTENANCE DOSE
     Route: 065
  4. SODIUM CHLORIDE [Suspect]
     Active Substance: SODIUM CHLORIDE
     Indication: Adrenogenital syndrome
     Dosage: 130 MILLIEQUIVALENTS DAILY;
     Route: 050

REACTIONS (4)
  - Hypertension [Recovering/Resolving]
  - Hypernatraemia [Unknown]
  - Left ventricular hypertrophy [Unknown]
  - Overdose [Unknown]
